FAERS Safety Report 5682184-0 (Version None)
Quarter: 2008Q1

REPORT INFORMATION
  Report Type: 
  Country: None (occurrence: None)
  Receive Date: 20080325
  Receipt Date: 20080310
  Transmission Date: 20080703
  Serious: Yes (Other)
  Sender: FDA-Public Use
  Company Number: 2008S1004204

PATIENT
  Age: 1 Year
  Sex: Female

DRUGS (1)
  1. PAROXETINE HCL [Suspect]
     Indication: DRUG USE FOR UNKNOWN INDICATION
     Dosage: 20 MG; 1; ORAL
     Route: 048
     Dates: start: 20080308, end: 20080308

REACTIONS (1)
  - ACCIDENTAL DRUG INTAKE BY CHILD [None]
